FAERS Safety Report 6579149-3 (Version None)
Quarter: 2010Q1

REPORT INFORMATION
  Report Type: 
  Country: None (occurrence: None)
  Receive Date: 20100212
  Receipt Date: 20100203
  Transmission Date: 20100710
  Serious: Yes (Hospitalization, Other)
  Sender: FDA-Public Use
  Company Number: JP-BAYER-200912012BYL

PATIENT
  Age: 73 Year
  Sex: Male
  Weight: 59 kg

DRUGS (8)
  1. NEXAVAR [Suspect]
     Indication: RENAL CELL CARCINOMA
     Dosage: TOTAL DAILY DOSE: 800 MG  UNIT DOSE: 200 MG
     Route: 048
     Dates: start: 20090514, end: 20090530
  2. NEXAVAR [Suspect]
     Dosage: UNIT DOSE: 200 MG
     Route: 048
     Dates: start: 20090703, end: 20090706
  3. NEXAVAR [Suspect]
     Route: 048
     Dates: end: 20090613
  4. ADALAT CC [Concomitant]
     Route: 048
     Dates: start: 20090513
  5. MICARDIS [Concomitant]
     Route: 048
     Dates: start: 20090513
  6. RIZE [Concomitant]
     Route: 048
     Dates: start: 20090513
  7. URIEF [Concomitant]
     Route: 048
     Dates: start: 20090520
  8. HYPEN [Concomitant]
     Route: 048
     Dates: start: 20090527

REACTIONS (6)
  - PNEUMONIA [None]
  - PSEUDOMEMBRANOUS COLITIS [None]
  - PYELONEPHRITIS [None]
  - PYREXIA [None]
  - RENAL CELL CARCINOMA [None]
  - URINARY TRACT INFECTION [None]
